FAERS Safety Report 20675904 (Version 1)
Quarter: 2022Q2

REPORT INFORMATION
  Report Type: Spontaneous
  Country: US (occurrence: US)
  Receive Date: 20220405
  Receipt Date: 20220405
  Transmission Date: 20220720
  Serious: No
  Sender: FDA-Public Use
  Company Number: US-DSJP-DSU-2022-111811AA

PATIENT
  Sex: Male

DRUGS (1)
  1. EFFIENT [Suspect]
     Active Substance: PRASUGREL HYDROCHLORIDE
     Indication: Premedication
     Dosage: 10 MG, QD
     Route: 065
     Dates: start: 202203

REACTIONS (2)
  - Therapeutic response unexpected [Not Recovered/Not Resolved]
  - No adverse event [Not Recovered/Not Resolved]
